FAERS Safety Report 7820983-7 (Version None)
Quarter: 2011Q4

REPORT INFORMATION
  Report Type: 
  Country: None (occurrence: None)
  Receive Date: 20111018
  Receipt Date: 20111011
  Transmission Date: 20120403
  Serious: Yes (Other)
  Sender: FDA-Public Use
  Company Number: US-US-EMD SERONO, INC.-7089267

PATIENT
  Sex: Female
  Weight: 91 kg

DRUGS (3)
  1. BACLOFEN [Concomitant]
     Indication: MUSCLE SPASTICITY
  2. UNSPECIFIED MEDICATIONS [Concomitant]
     Indication: MULTIPLE SCLEROSIS
  3. REBIF [Suspect]
     Indication: MULTIPLE SCLEROSIS
     Route: 058
     Dates: start: 20090412, end: 20110801

REACTIONS (3)
  - DIVERTICULITIS [None]
  - TOOTH ABSCESS [None]
  - GASTRITIS [None]
